FAERS Safety Report 21356274 (Version 2)
Quarter: 2022Q4

REPORT INFORMATION
  Report Type: Spontaneous
  Country: US (occurrence: US)
  Receive Date: 20220920
  Receipt Date: 20221020
  Transmission Date: 20230113
  Serious: Yes (Hospitalization)
  Sender: FDA-Public Use
  Company Number: US-PFIZER INC-202201171154

PATIENT
  Sex: Male

DRUGS (1)
  1. PAXLOVID [Suspect]
     Active Substance: NIRMATRELVIR\RITONAVIR
     Indication: COVID-19 treatment
     Dosage: UNK
     Dates: start: 20220802, end: 20220803

REACTIONS (5)
  - Taste disorder [Unknown]
  - Abdominal pain upper [Unknown]
  - COVID-19 [Unknown]
  - Disease recurrence [Unknown]
  - Hypertension [Unknown]

NARRATIVE: CASE EVENT DATE: 20220801
